FAERS Safety Report 21448115 (Version 1)
Quarter: 2022Q4

REPORT INFORMATION
  Report Type: Spontaneous
  Country: US (occurrence: None)
  Receive Date: 20221011
  Receipt Date: 20221011
  Transmission Date: 20230112
  Serious: No
  Sender: FDA-Public Use
  Company Number: None

PATIENT
  Sex: Female

DRUGS (3)
  1. PROGESTERONE [Suspect]
     Active Substance: PROGESTERONE
     Dosage: 50 MG/ML INTRAMUSCULAR?INJECT 1.5 ML IN THE MUSCLE EVERY EVENING
     Route: 030
     Dates: start: 20220910
  2. ESTRADIOL [Concomitant]
  3. LUPRON DEPOT [Concomitant]
     Active Substance: LEUPROLIDE ACETATE

REACTIONS (1)
  - Pregnancy test positive [None]
